FAERS Safety Report 8241290 (Version 7)
Quarter: 2015Q3

REPORT INFORMATION
  Report Type: Spontaneous
  Country: JP (occurrence: JP)
  Receive Date: 20111111
  Receipt Date: 20150813
  Transmission Date: 20151125
  Serious: Yes (Death, Other)
  Sender: FDA-Public Use
  Company Number: JP-JNJFOC-20111102466

PATIENT
  Age: 37 Year
  Sex: Female
  Weight: 59 kg

DRUGS (21)
  1. DUROTEP MT PATCH [Suspect]
     Active Substance: FENTANYL
     Indication: CANCER PAIN
     Route: 062
     Dates: start: 20100925, end: 20100927
  2. FENTANYL CITRATE. [Concomitant]
     Active Substance: FENTANYL CITRATE
     Indication: PRODUCT USED FOR UNKNOWN INDICATION
     Route: 042
     Dates: start: 20100920, end: 20100921
  3. DUROTEP MT PATCH [Suspect]
     Active Substance: FENTANYL
     Indication: CANCER PAIN
     Route: 062
  4. DUROTEP MT PATCH [Suspect]
     Active Substance: FENTANYL
     Indication: CANCER PAIN
     Route: 062
     Dates: start: 20100921, end: 20100924
  5. DUROTEP MT PATCH [Suspect]
     Active Substance: FENTANYL
     Indication: PAIN
     Route: 062
     Dates: start: 20100927, end: 20100930
  6. GABAPENTIN. [Concomitant]
     Active Substance: GABAPENTIN
     Indication: NEURALGIA
     Route: 048
  7. DUROTEP MT PATCH [Suspect]
     Active Substance: FENTANYL
     Indication: PAIN
     Route: 062
     Dates: start: 20100921, end: 20100924
  8. DUROTEP MT PATCH [Suspect]
     Active Substance: FENTANYL
     Indication: PAIN
     Route: 062
     Dates: start: 20100925, end: 20100927
  9. DUROTEP MT PATCH [Suspect]
     Active Substance: FENTANYL
     Indication: CANCER PAIN
     Route: 062
     Dates: start: 20101003, end: 20101015
  10. DUROTEP MT PATCH [Suspect]
     Active Substance: FENTANYL
     Indication: PROCEDURAL PAIN
     Route: 062
     Dates: start: 20100921, end: 20100924
  11. DUROTEP MT PATCH [Suspect]
     Active Substance: FENTANYL
     Indication: PROCEDURAL PAIN
     Route: 062
  12. DUROTEP MT PATCH [Suspect]
     Active Substance: FENTANYL
     Indication: PROCEDURAL PAIN
     Route: 062
     Dates: start: 20100927, end: 20100930
  13. DUROTEP MT PATCH [Suspect]
     Active Substance: FENTANYL
     Indication: PROCEDURAL PAIN
     Route: 062
     Dates: start: 20100925, end: 20100927
  14. DUROTEP MT PATCH [Suspect]
     Active Substance: FENTANYL
     Indication: PROCEDURAL PAIN
     Route: 062
     Dates: start: 20101003, end: 20101015
  15. DUROTEP MT PATCH [Suspect]
     Active Substance: FENTANYL
     Indication: PAIN
     Route: 062
  16. DUROTEP MT PATCH [Suspect]
     Active Substance: FENTANYL
     Indication: PAIN
     Route: 062
     Dates: start: 20100930, end: 20101015
  17. DUROTEP MT PATCH [Suspect]
     Active Substance: FENTANYL
     Indication: PAIN
     Route: 062
     Dates: start: 20101003, end: 20101015
  18. DUROTEP MT PATCH [Suspect]
     Active Substance: FENTANYL
     Indication: CANCER PAIN
     Route: 062
     Dates: start: 20100927, end: 20100930
  19. DUROTEP MT PATCH [Suspect]
     Active Substance: FENTANYL
     Indication: CANCER PAIN
     Route: 062
     Dates: start: 20100930, end: 20101015
  20. DUROTEP MT PATCH [Suspect]
     Active Substance: FENTANYL
     Indication: PROCEDURAL PAIN
     Route: 062
     Dates: start: 20100930, end: 20101015
  21. AMOXAPINE. [Interacting]
     Active Substance: AMOXAPINE
     Indication: NEURALGIA
     Route: 048
     Dates: start: 20100927, end: 20101004

REACTIONS (3)
  - Drug interaction [Recovered/Resolved]
  - Cervix carcinoma [Fatal]
  - Serotonin syndrome [Recovered/Resolved]

NARRATIVE: CASE EVENT DATE: 20101004
